FAERS Safety Report 16642779 (Version 1)
Quarter: 2019Q3

REPORT INFORMATION
  Report Type: Other
  Country: CA (occurrence: CA)
  Receive Date: 20190729
  Receipt Date: 20190729
  Transmission Date: 20191004
  Serious: Yes (Other)
  Sender: FDA-Public Use
  Company Number: CA-PFIZER INC-2019312612

PATIENT
  Sex: Male

DRUGS (4)
  1. FRAGMIN [Suspect]
     Active Substance: DALTEPARIN SODIUM
     Indication: FACTOR V LEIDEN MUTATION
  2. WARFARIN [Suspect]
     Active Substance: WARFARIN
     Indication: SUPERIOR SAGITTAL SINUS THROMBOSIS
     Dosage: 5 MG, UNK
     Route: 064
  3. WARFARIN [Suspect]
     Active Substance: WARFARIN
     Indication: FACTOR V LEIDEN MUTATION
  4. FRAGMIN [Suspect]
     Active Substance: DALTEPARIN SODIUM
     Indication: SUPERIOR SAGITTAL SINUS THROMBOSIS
     Dosage: 5000 UNK, UNK
     Route: 064

REACTIONS (3)
  - Maternal exposure during pregnancy [Unknown]
  - Foetal warfarin syndrome [Unknown]
  - Foetal exposure during pregnancy [Unknown]
